FAERS Safety Report 5079952-5 (Version None)
Quarter: 2006Q3

REPORT INFORMATION
  Report Type: 
  Country: None (occurrence: None)
  Receive Date: 20060720
  Receipt Date: 20050627
  Transmission Date: 20061208
  Serious: Yes (Hospitalization, Other)
  Sender: FDA-Public Use
  Company Number: 2005094495

PATIENT
  Age: 62 Year
  Sex: Male
  Weight: 79.3795 kg

DRUGS (6)
  1. CELEBREX [Suspect]
     Indication: ARTHRALGIA
     Dosage: 200 MG (200 MG, 1 IN 1 D), ORAL
     Route: 048
     Dates: start: 20050601, end: 20050601
  2. BEXTRA [Suspect]
     Indication: ARTHRALGIA
     Dosage: ORAL
     Route: 048
  3. OXYCONTIN [Suspect]
     Indication: ARTHRALGIA
     Dosage: (2 IN 1 D), ORAL
     Route: 048
     Dates: end: 20050601
  4. ALCOHOL (ETHANOL) [Suspect]
     Indication: ILL-DEFINED DISORDER
     Dosage: ORAL
     Route: 048
     Dates: start: 20050613
  5. ANTHYPERTENSIVES [Concomitant]
  6. DRUG, UNSPECIFIED DRUG [Concomitant]

REACTIONS (7)
  - ABDOMINAL PAIN UPPER [None]
  - DIZZINESS [None]
  - DRUG INEFFECTIVE [None]
  - DYSURIA [None]
  - HYPERHIDROSIS [None]
  - INTESTINAL OBSTRUCTION [None]
  - PANCREATITIS [None]
